FAERS Safety Report 16035700 (Version 1)
Quarter: 2019Q1

REPORT INFORMATION
  Report Type: Spontaneous
  Country: NL (occurrence: NL)
  Receive Date: 20190305
  Receipt Date: 20190305
  Transmission Date: 20190418
  Serious: Yes (Other)
  Sender: FDA-Public Use
  Company Number: NL-MYLANLABS-2019M1018765

PATIENT
  Sex: Female
  Weight: 82 kg

DRUGS (1)
  1. METOPROLOL. [Suspect]
     Active Substance: METOPROLOL
     Indication: LONG QT SYNDROME
     Dosage: 2X PER DAG 1 ST
     Route: 048
     Dates: start: 2016, end: 2018

REACTIONS (1)
  - Depression suicidal [Recovered/Resolved]
